FAERS Safety Report 12585779 (Version 1)
Quarter: 2016Q3

REPORT INFORMATION
  Report Type: Report from Study
  Country: US (occurrence: US)
  Receive Date: 20160725
  Receipt Date: 20160725
  Transmission Date: 20161109
  Serious: Yes (Congenital Anomaly, Other)
  Sender: FDA-Public Use
  Company Number: US-AMGEN-USASL2016093666

PATIENT
  Age: 0 Day
  Sex: Male

DRUGS (4)
  1. ENBREL [Suspect]
     Active Substance: ETANERCEPT
     Dosage: 50 UNK, QWK
     Route: 064
     Dates: start: 2013
  2. HEPARIN [Concomitant]
     Active Substance: HEPARIN SODIUM
     Dosage: UNK
     Route: 064
  3. ENBREL [Suspect]
     Active Substance: ETANERCEPT
     Indication: EXPOSURE DURING PREGNANCY
     Dosage: 50 UNK, QWK
     Route: 064
     Dates: start: 20050123, end: 20100817
  4. ENBREL [Suspect]
     Active Substance: ETANERCEPT
     Dosage: UNK
     Route: 064
     Dates: end: 2011

REACTIONS (2)
  - Hypospadias [Unknown]
  - Premature baby [Recovered/Resolved]

NARRATIVE: CASE EVENT DATE: 20120702
